FAERS Safety Report 5394628-2 (Version None)
Quarter: 2007Q3

REPORT INFORMATION
  Report Type: 
  Country: None (occurrence: None)
  Receive Date: 20070723
  Receipt Date: 20070718
  Transmission Date: 20080115
  Serious: Yes (Hospitalization)
  Sender: FDA-Public Use
  Company Number: US-ELI_LILLY_AND_COMPANY-US200707004701

PATIENT
  Age: 63 Year
  Sex: Female
  Weight: 117 kg

DRUGS (10)
  1. LISPRO REGLISPRO [Suspect]
     Indication: TYPE 2 DIABETES MELLITUS
     Dosage: 20 IU, 3/D
     Route: 058
     Dates: start: 20070501
  2. LANTUS [Suspect]
     Indication: TYPE 2 DIABETES MELLITUS
     Dosage: 25 IU, DAILY (1/D)
     Route: 058
     Dates: start: 20070501
  3. LISINOPRIL [Concomitant]
     Indication: HYPERTENSION
     Dates: start: 20050101
  4. NITROQUICK [Concomitant]
     Indication: ANGINA PECTORIS
     Dates: start: 20020101
  5. FUROSEMIDE [Concomitant]
     Indication: HYPERTENSION
     Dates: start: 20050101
  6. QUININE [Concomitant]
     Indication: MUSCLE SPASMS
     Dates: start: 20050101
  7. ATORVASTATIN CALCIUM [Concomitant]
     Indication: HYPERLIPIDAEMIA
     Dates: start: 20050101
  8. KLOR-CON [Concomitant]
     Indication: SUPPLEMENTATION THERAPY
     Dates: start: 20050101
  9. TYLENOL                                 /SCH/ [Concomitant]
     Indication: BACK PAIN
  10. ACTOS [Concomitant]
     Indication: DIABETES MELLITUS
     Dates: start: 20050101

REACTIONS (2)
  - CHEST PAIN [None]
  - DYSPNOEA [None]
